FAERS Safety Report 6698651-7 (Version None)
Quarter: 2010Q2

REPORT INFORMATION
  Report Type: 
  Country: None (occurrence: None)
  Receive Date: 20100427
  Receipt Date: 20100414
  Transmission Date: 20101027
  Serious: Yes (Other)
  Sender: FDA-Public Use
  Company Number: PHHY2010IT24036

PATIENT
  Sex: Female

DRUGS (1)
  1. FEMARA [Suspect]
     Dosage: 2.5 MG, DAILY
     Route: 048
     Dates: start: 20090901, end: 20100331

REACTIONS (4)
  - MENISCUS LESION [None]
  - MUSCULOSKELETAL STIFFNESS [None]
  - PAIN [None]
  - POSTERIOR TIBIAL NERVE INJURY [None]
